FAERS Safety Report 4287455-0 (Version None)
Quarter: 2004Q1

REPORT INFORMATION
  Report Type: 
  Country: None (occurrence: None)
  Receive Date: 20040209
  Receipt Date: 20030630
  Transmission Date: 20041129
  Serious: No
  Sender: FDA-Public Use
  Company Number: US-GLAXOSMITHKLINE-A0414533A

PATIENT
  Sex: Male

DRUGS (4)
  1. PAXIL CR [Suspect]
     Route: 048
  2. HIV TREATMENTS (UNSPECIFIED) [Concomitant]
  3. LOTREL [Concomitant]
  4. ADVAIR DISKUS 100/50 [Concomitant]

REACTIONS (1)
  - CHOREA [None]
